FAERS Safety Report 5927416-6 (Version None)
Quarter: 2008Q4

REPORT INFORMATION
  Report Type: 
  Country: None (occurrence: None)
  Receive Date: 20081021
  Receipt Date: 20081021
  Transmission Date: 20090506
  Serious: Yes (Other)
  Sender: FDA-Public Use
  Company Number: None

PATIENT
  Age: 58 Year
  Sex: Female
  Weight: 124.7392 kg

DRUGS (1)
  1. RITUXIMAB 1,000 MG GENENTECH [Suspect]
     Indication: RHEUMATOID ARTHRITIS
     Dosage: 1,000 MG IV
     Route: 042
     Dates: start: 20080715, end: 20080729

REACTIONS (1)
  - RASH [None]
